FAERS Safety Report 16799824 (Version 1)
Quarter: 2019Q3

REPORT INFORMATION
  Report Type: Spontaneous
  Country: US (occurrence: US)
  Receive Date: 20190722
  Receipt Date: 20190722
  Transmission Date: 20191005
  Serious: No
  Sender: FDA-Public Use
  Company Number: None

PATIENT
  Age: 76 Year
  Sex: Female
  Weight: 106.59 kg

DRUGS (9)
  1. AZO BLADDER CONTROL [Concomitant]
  2. MULTI VITS [Concomitant]
     Active Substance: VITAMINS
  3. CRANBERRY. [Concomitant]
     Active Substance: CRANBERRY
  4. DIGESTIVE ENZYMES [Concomitant]
     Active Substance: UNSPECIFIED INGREDIENT
  5. BUDESINITE [Concomitant]
  6. MILK THISTLE [Concomitant]
     Active Substance: DIETARY SUPPLEMENT\HERBALS\MILK THISTLE
  7. PROBIOTICS [Concomitant]
     Active Substance: PROBIOTICS NOS
  8. FISH OIL [Concomitant]
     Active Substance: FISH OIL
  9. GABAPENTIN 300MG CAPS [Suspect]
     Active Substance: GABAPENTIN
     Indication: COUGH
     Dosage: ?          QUANTITY:90 DF DOSAGE FORM;?TAKE DAILY- MORNING ONCE + BEDTIME BY MOUTH?
     Route: 048
     Dates: start: 20190711, end: 20190712

REACTIONS (3)
  - Product substitution issue [None]
  - Condition aggravated [None]
  - Headache [None]

NARRATIVE: CASE EVENT DATE: 20190711
